FAERS Safety Report 4980088-X (Version None)
Quarter: 2006Q2

REPORT INFORMATION
  Report Type: 
  Country: None (occurrence: None)
  Receive Date: 20060421
  Receipt Date: 20050815
  Transmission Date: 20061013
  Serious: Yes (Life-Threatening, Hospitalization)
  Sender: FDA-Public Use
  Company Number: US-MERCK-0508USA02584

PATIENT
  Age: 54 Year
  Sex: Female

DRUGS (3)
  1. VIOXX [Suspect]
     Indication: PAIN
     Route: 048
     Dates: start: 19991004, end: 20041001
  2. VIOXX [Suspect]
     Indication: ARTHRITIS
     Route: 048
     Dates: start: 19991004, end: 20041001
  3. [THERAPY UNSPECIFIED] [Concomitant]
     Indication: THYROID DISORDER
     Route: 065

REACTIONS (11)
  - ADVERSE EVENT [None]
  - ARTHRITIS [None]
  - CARDIAC FLUTTER [None]
  - CHEST PAIN [None]
  - CORONARY ARTERY STENOSIS [None]
  - DEAFNESS UNILATERAL [None]
  - DYSPNOEA [None]
  - HAEMATEMESIS [None]
  - HAND FRACTURE [None]
  - HYPERTENSION [None]
  - MUSCULOSKELETAL DISORDER [None]
